FAERS Safety Report 8318112-9 (Version None)
Quarter: 2012Q2

REPORT INFORMATION
  Report Type: 
  Country: None (occurrence: None)
  Receive Date: 20120427
  Receipt Date: 20120419
  Transmission Date: 20120825
  Serious: Yes (Hospitalization, Other)
  Sender: FDA-Public Use
  Company Number: FR-RANBAXY-2012RR-55897

PATIENT
  Age: 64 Year
  Sex: Female

DRUGS (1)
  1. ACETAMINOPHEN [Suspect]
     Indication: PRODUCT USED FOR UNKNOWN INDICATION
     Dosage: 100 G (1.66 G/KG)
     Route: 048

REACTIONS (6)
  - COAGULOPATHY [None]
  - OVERDOSE [None]
  - RHABDOMYOLYSIS [None]
  - HEPATITIS TOXIC [None]
  - COMA [None]
  - METABOLIC ACIDOSIS [None]
